FAERS Safety Report 8808942 (Version 1)
Quarter: 2012Q4

REPORT INFORMATION
  Report Type: Spontaneous
  Country: US (occurrence: None)
  Receive Date: 20120921
  Receipt Date: 20120921
  Transmission Date: 20130627
  Serious: Yes (Disabling)
  Sender: FDA-Public Use
  Company Number: None

PATIENT
  Sex: Female
  Weight: 85.28 kg

DRUGS (2)
  1. COUMADIN [Suspect]
     Indication: OPEN HEART SURGERY
     Dosage: 8 mg daily orally
     Route: 048
     Dates: start: 200506
  2. COUMADIN [Suspect]
     Indication: HEART VALVE REPLACEMENT
     Dosage: 8 mg daily orally
     Route: 048
     Dates: start: 200506

REACTIONS (2)
  - Blindness unilateral [None]
  - Visual field defect [None]
